FAERS Safety Report 14502015 (Version 2)
Quarter: 2018Q1

REPORT INFORMATION
  Report Type: Report from Study
  Country: US (occurrence: US)
  Receive Date: 20180208
  Receipt Date: 20180214
  Transmission Date: 20180509
  Serious: Yes (Other)
  Sender: FDA-Public Use
  Company Number: US-ROCHE-2063393

PATIENT
  Age: 76 Year
  Sex: Female

DRUGS (1)
  1. ERIVEDGE [Suspect]
     Active Substance: VISMODEGIB
     Indication: BASAL CELL CARCINOMA
     Dosage: ONGOING:NO
     Route: 065

REACTIONS (1)
  - Dementia Alzheimer^s type [Unknown]

NARRATIVE: CASE EVENT DATE: 20171027
